FAERS Safety Report 15318477 (Version 1)
Quarter: 2018Q3

REPORT INFORMATION
  Report Type: Spontaneous
  Country: US (occurrence: US)
  Receive Date: 20180817
  Receipt Date: 20180817
  Transmission Date: 20181010
  Serious: Yes (Disabling)
  Sender: FDA-Public Use
  Company Number: None

PATIENT
  Age: 55 Year
  Sex: Female
  Weight: 124.2 kg

DRUGS (10)
  1. IRON [Concomitant]
     Active Substance: IRON
  2. OLANZAPINE. [Concomitant]
     Active Substance: OLANZAPINE
  3. FISH OIL [Concomitant]
     Active Substance: FISH OIL
  4. LORAZEPAM. [Suspect]
     Active Substance: LORAZEPAM
     Indication: SLEEP DISORDER THERAPY
     Dosage: ?          QUANTITY:1 TABLET(S);?
     Route: 048
  5. IBUPROFEN. [Concomitant]
     Active Substance: IBUPROFEN
  6. VITAMIN B [Concomitant]
     Active Substance: VITAMIN B
  7. POTASSIUM [Concomitant]
     Active Substance: POTASSIUM
  8. MULTIVITAMIN [Concomitant]
     Active Substance: VITAMINS
  9. LORAZEPAM. [Suspect]
     Active Substance: LORAZEPAM
     Indication: PALPITATIONS
     Dosage: ?          QUANTITY:1 TABLET(S);?
     Route: 048
  10. LORAZEPAM. [Suspect]
     Active Substance: LORAZEPAM
     Indication: MOOD ALTERED
     Dosage: ?          QUANTITY:1 TABLET(S);?
     Route: 048

REACTIONS (5)
  - Stress [None]
  - Product substitution issue [None]
  - Drug ineffective [None]
  - Suspected counterfeit product [None]
  - Drug dispensing error [None]

NARRATIVE: CASE EVENT DATE: 20180701
